FAERS Safety Report 4341651-2 (Version None)
Quarter: 2004Q2

REPORT INFORMATION
  Report Type: 
  Country: None (occurrence: None)
  Receive Date: 20040420
  Receipt Date: 20040412
  Transmission Date: 20050107
  Serious: Yes (Other)
  Sender: FDA-Public Use
  Company Number: DZ-ROCHE-364074

PATIENT
  Age: 45 Year
  Sex: Female

DRUGS (2)
  1. LOXEN LP [Suspect]
     Indication: DRUG USE FOR UNKNOWN INDICATION
     Route: 048
  2. LOXEN LP [Suspect]
     Route: 048

REACTIONS (3)
  - FACE OEDEMA [None]
  - FLUSHING [None]
  - OEDEMA PERIPHERAL [None]
